FAERS Safety Report 5742284-3 (Version None)
Quarter: 2008Q2

REPORT INFORMATION
  Report Type: 
  Country: None (occurrence: None)
  Receive Date: 20080519
  Receipt Date: 20080513
  Transmission Date: 20081010
  Serious: Yes (Hospitalization)
  Sender: FDA-Public Use
  Company Number: PHHO2008SG01643

PATIENT
  Age: 36 Year
  Sex: Female
  Weight: 78 kg

DRUGS (1)
  1. TASIGNA [Suspect]
     Indication: CHRONIC MYELOID LEUKAEMIA
     Dosage: 800 MG, QD
     Route: 048
     Dates: start: 20071213

REACTIONS (10)
  - COUGH [None]
  - DIZZINESS [None]
  - HEADACHE [None]
  - MULTIPLE SYSTEM ATROPHY [None]
  - NAUSEA [None]
  - PYREXIA [None]
  - SYNCOPE VASOVAGAL [None]
  - TINNITUS [None]
  - VERTIGO [None]
  - VESTIBULAR NEURONITIS [None]
